FAERS Safety Report 5281826-1 (Version None)
Quarter: 2007Q1

REPORT INFORMATION
  Report Type: 
  Country: None (occurrence: None)
  Receive Date: 20070330
  Receipt Date: 20070326
  Transmission Date: 20070707
  Serious: Yes (Hospitalization)
  Sender: FDA-Public Use
  Company Number: FR-MERCK-0702FRA00070

PATIENT
  Age: 41 Year
  Sex: Female

DRUGS (5)
  1. NOROXIN [Suspect]
     Indication: URINARY TRACT INFECTION
     Route: 048
     Dates: start: 20070117, end: 20070124
  2. PREDNISONE [Concomitant]
     Route: 048
     Dates: start: 20070116, end: 20070124
  3. BIMATOPROST [Concomitant]
     Route: 048
  4. OXYBUTYNIN CHLORIDE [Concomitant]
     Route: 048
     Dates: start: 20060426
  5. RITUXIMAB [Suspect]
     Route: 042
     Dates: start: 20060315

REACTIONS (1)
  - AGRANULOCYTOSIS [None]
